FAERS Safety Report 9486385 (Version 3)
Quarter: 2013Q4

REPORT INFORMATION
  Report Type: Spontaneous
  Country: IT (occurrence: IT)
  Receive Date: 20130829
  Receipt Date: 20131017
  Transmission Date: 20140711
  Serious: Yes (Hospitalization)
  Sender: FDA-Public Use
  Company Number: IT-009507513-1308ITA012003

PATIENT
  Age: 83 Year
  Sex: Male

DRUGS (3)
  1. SIMVASTATIN [Suspect]
     Dosage: TOTAL DAILY DOSE: 20 MG
     Route: 048
     Dates: start: 20130615
  2. CARDIOASPIRIN [Suspect]
     Indication: ANGIOPLASTY
     Dosage: TOTAL DAILY DOSE:100 MG
     Route: 048
     Dates: start: 20130615
  3. PLAVIX [Suspect]
     Indication: ANGIOPLASTY
     Dosage: TOTAL DAILY DOSE:75 MG
     Route: 048
     Dates: start: 20130615

REACTIONS (2)
  - Syncope [Recovered/Resolved]
  - Vertigo [Recovered/Resolved]
